FAERS Safety Report 22345274 (Version 1)
Quarter: 2023Q2

REPORT INFORMATION
  Report Type: Report from Study
  Country: GB (occurrence: GB)
  Receive Date: 20230519
  Receipt Date: 20230519
  Transmission Date: 20230721
  Serious: Yes (Hospitalization)
  Sender: FDA-Public Use
  Company Number: GB-ROCHE-2082636

PATIENT
  Age: 67 Year
  Sex: Female

DRUGS (18)
  1. DOCETAXEL [Suspect]
     Active Substance: DOCETAXEL
     Indication: Breast cancer metastatic
     Dosage: 130 MILLIGRAM, Q3W
     Route: 042
     Dates: start: 20161110, end: 20161110
  2. DOCETAXEL [Suspect]
     Active Substance: DOCETAXEL
     Dosage: 66 MILLIGRAM, Q3W (START DATE: 04-JAN-2017)
     Route: 042
     Dates: end: 20170215
  3. EXEMESTANE [Suspect]
     Active Substance: EXEMESTANE
     Indication: Breast cancer metastatic
     Dosage: 25 MILLIGRAM, QD (START DATE: 11-DEC-2018)
     Route: 048
  4. EPIRUBICIN [Suspect]
     Active Substance: EPIRUBICIN
     Indication: Breast cancer metastatic
     Dosage: 110 MILLIGRAM, Q3W (START DATE: 24-APR-2017)
     Route: 042
     Dates: end: 20170607
  5. LETROZOLE [Suspect]
     Active Substance: LETROZOLE
     Indication: Breast cancer metastatic
     Dosage: 2.5 MILLIGRAM, QD (START DATE: 23-NOV-2017)
     Route: 048
     Dates: end: 201802
  6. TRASTUZUMAB [Suspect]
     Active Substance: TRASTUZUMAB
     Indication: Breast cancer metastatic
     Dosage: 600 MILLIGRAM, Q3W
     Route: 042
     Dates: start: 20161110, end: 20161110
  7. TRASTUZUMAB [Suspect]
     Active Substance: TRASTUZUMAB
     Dosage: 450 MILLIGRAM, Q3W (START DATE: 07-DEC-2016)
     Route: 042
     Dates: end: 20170426
  8. TAMOXIFEN [Suspect]
     Active Substance: TAMOXIFEN
     Indication: Breast cancer metastatic
     Dosage: 1 DOSAGE FORM, QD (START DATE: ??-JUN-2018)
     Route: 048
     Dates: end: 201809
  9. CYCLOPHOSPHAMIDE [Suspect]
     Active Substance: CYCLOPHOSPHAMIDE
     Indication: Breast cancer metastatic
     Dosage: 900 MILLIGRAM, Q3W (START DATE: 24-APR-2017)
     Route: 042
     Dates: end: 20170607
  10. PERTUZUMAB [Suspect]
     Active Substance: PERTUZUMAB
     Indication: Breast cancer metastatic
     Dosage: 420 MILLIGRAM, Q3W (START DATE: 26-JUN-2017)
     Route: 042
     Dates: end: 20170922
  11. PERTUZUMAB [Suspect]
     Active Substance: PERTUZUMAB
     Dosage: 420 MILLIGRAM, Q3W (START DATE: 07-DEC-2016)
     Route: 042
     Dates: end: 20170405
  12. PERTUZUMAB [Suspect]
     Active Substance: PERTUZUMAB
     Dosage: 840 MILLIGRAM (LOADING DOSE) START DATE: 09-NOV-2016
     Route: 042
     Dates: end: 20161109
  13. CLOTRIMAZOLE [Concomitant]
     Active Substance: CLOTRIMAZOLE
     Indication: Vulvovaginal candidiasis
     Dosage: UNK, START DATE: ??-JAN-2017
     Route: 065
     Dates: end: 201702
  14. CETIRIZINE [Concomitant]
     Active Substance: CETIRIZINE HYDROCHLORIDE
     Indication: Rhinorrhoea
     Dosage: UNK, START DATE: 13-FEB-2017
     Route: 065
  15. CETIRIZINE [Concomitant]
     Active Substance: CETIRIZINE HYDROCHLORIDE
     Indication: Lacrimation increased
  16. LANSOPRAZOLE [Concomitant]
     Active Substance: LANSOPRAZOLE
     Indication: Dyspepsia
     Dosage: UNK, START DATE: ??-FEB-2017
     Route: 065
  17. LANSOPRAZOLE [Concomitant]
     Active Substance: LANSOPRAZOLE
     Indication: Prophylaxis
     Dosage: 30 MILLIGRAM, QD (START DATE: ??-OCT-2016)
     Route: 048
  18. LOPERAMIDE [Concomitant]
     Active Substance: LOPERAMIDE
     Indication: Diarrhoea
     Dosage: 2 MILLIGRAM, QID (START DATE: 24-NOV-2016)
     Route: 048

REACTIONS (5)
  - Fatigue [Recovered/Resolved]
  - Neutropenic sepsis [Recovered/Resolved]
  - Joint swelling [Unknown]
  - Diarrhoea [Not Recovered/Not Resolved]
  - Mouth ulceration [Not Recovered/Not Resolved]

NARRATIVE: CASE EVENT DATE: 20161116
